FAERS Safety Report 9660524 (Version 2)
Quarter: 2013Q4

REPORT INFORMATION
  Report Type: Spontaneous
  Country: DE (occurrence: DE)
  Receive Date: 20131031
  Receipt Date: 20131127
  Transmission Date: 20140711
  Serious: Yes (Hospitalization)
  Sender: FDA-Public Use
  Company Number: DE-NOVOPROD-390628

PATIENT
  Age: 49 Year
  Sex: Male
  Weight: 120 kg

DRUGS (5)
  1. VICTOZA [Suspect]
     Indication: TYPE 2 DIABETES MELLITUS
     Dosage: 1.2 MG, QD
     Route: 058
     Dates: start: 20130704, end: 20131018
  2. BISOPROLOL [Concomitant]
     Indication: HYPERTENSION
     Dosage: 5 UNK, DAILY
     Route: 048
     Dates: start: 20120525
  3. METFORMIN [Concomitant]
     Indication: TYPE 2 DIABETES MELLITUS
     Dosage: 2000 UNK, DAILY
     Route: 048
     Dates: start: 20120525
  4. PANTOZOL                           /01263204/ [Concomitant]
     Indication: PRODUCT USED FOR UNKNOWN INDICATION
     Dosage: 20 UNK, QD
     Route: 048
     Dates: start: 20130308
  5. RAMIPRIL [Concomitant]
     Indication: HYPERTENSION
     Dosage: 5 UNK, QD
     Route: 048
     Dates: start: 20130308

REACTIONS (1)
  - Pancreatitis [Not Recovered/Not Resolved]
